FAERS Safety Report 10031776 (Version 1)
Quarter: 2014Q1

REPORT INFORMATION
  Report Type: Spontaneous
  Country: JP (occurrence: JP)
  Receive Date: 20140324
  Receipt Date: 20140324
  Transmission Date: 20141002
  Serious: Yes (Other)
  Sender: FDA-Public Use
  Company Number: JP-UCBSA-115085

PATIENT
  Age: 39 Year
  Sex: Male

DRUGS (1)
  1. XYZAL [Suspect]
     Route: 048
     Dates: start: 201302

REACTIONS (1)
  - Drug-induced liver injury [Unknown]
